FAERS Safety Report 7634357-5 (Version None)
Quarter: 2011Q3

REPORT INFORMATION
  Report Type: 
  Country: None (occurrence: None)
  Receive Date: 20110725
  Receipt Date: 20110715
  Transmission Date: 20111222
  Serious: Yes (Other)
  Sender: FDA-Public Use
  Company Number: US-ASTRAZENECA-2010SE31543

PATIENT
  Age: 672 Month
  Sex: Female
  Weight: 78 kg

DRUGS (5)
  1. TRAZODONE HCL [Concomitant]
     Indication: BIPOLAR DISORDER
     Route: 048
  2. SEROQUEL [Suspect]
     Indication: BIPOLAR DISORDER
     Route: 048
     Dates: start: 20090101
  3. DIGOXIN [Concomitant]
  4. CELEXA [Concomitant]
     Indication: BIPOLAR DISORDER
     Route: 048
  5. LAMICTAL [Concomitant]
     Indication: BIPOLAR DISORDER
     Route: 048

REACTIONS (4)
  - INTERVERTEBRAL DISC PROTRUSION [None]
  - FALL [None]
  - PAIN [None]
  - HAEMATOMA EVACUATION [None]
